FAERS Safety Report 17574978 (Version 2)
Quarter: 2020Q1

REPORT INFORMATION
  Report Type: Spontaneous
  Country: US (occurrence: US)
  Receive Date: 20200324
  Receipt Date: 20200326
  Transmission Date: 20200409
  Serious: No
  Sender: FDA-Public Use
  Company Number: US-TEVA-2020-US-1207847

PATIENT
  Age: 35 Year
  Sex: Female

DRUGS (1)
  1. LORAZEPAM. [Suspect]
     Active Substance: LORAZEPAM
     Dosage: TOOK 2 TABLETS ON 15-MAR-2020 AND 1 TABLE TON 16-MAR-2020
     Route: 065
     Dates: start: 20200315

REACTIONS (1)
  - Oropharyngeal discomfort [Not Recovered/Not Resolved]
